FAERS Safety Report 5530976-0 (Version None)
Quarter: 2007Q4

REPORT INFORMATION
  Report Type: 
  Country: None (occurrence: None)
  Receive Date: 20071130
  Receipt Date: 20071120
  Transmission Date: 20080405
  Serious: Yes (Other)
  Sender: FDA-Public Use
  Company Number: GB-PFIZER INC-2007084232

PATIENT
  Age: 45 Year
  Sex: Female

DRUGS (3)
  1. CHAMPIX [Suspect]
     Indication: SMOKING CESSATION THERAPY
     Route: 048
     Dates: start: 20070713, end: 20070810
  2. AMLODIPINE [Concomitant]
     Indication: HYPERTENSION
     Route: 048
  3. LISINOPRIL [Concomitant]
     Indication: HYPERTENSION
     Route: 048

REACTIONS (5)
  - DRUG WITHDRAWAL SYNDROME [None]
  - DYSARTHRIA [None]
  - EUPHORIC MOOD [None]
  - EYE IRRITATION [None]
  - FEELING ABNORMAL [None]
